FAERS Safety Report 6572540-0 (Version None)
Quarter: 2010Q1

REPORT INFORMATION
  Report Type: 
  Country: None (occurrence: None)
  Receive Date: 20100205
  Receipt Date: 20100125
  Transmission Date: 20100710
  Serious: Yes (Other)
  Sender: FDA-Public Use
  Company Number: US-JNJCH-2010002727

PATIENT
  Age: 81 Year
  Sex: Female
  Weight: 79.4 kg

DRUGS (18)
  1. ROLAIDS [Suspect]
     Indication: ANTACID THERAPY
     Dosage: TEXT:2-4 TABLETS; 12 IN 24HOUR PERIOD
     Route: 048
  2. COUMADIN [Concomitant]
     Indication: BLOOD DISORDER
     Route: 048
  3. COUMADIN [Concomitant]
     Route: 048
  4. PREDNISONE [Concomitant]
     Indication: DRUG USE FOR UNKNOWN INDICATION
     Route: 048
  5. DRUG USED IN DIABETES [Concomitant]
     Indication: DIABETES MELLITUS
     Route: 065
  6. ALPHAGAN [Concomitant]
     Indication: DRUG USE FOR UNKNOWN INDICATION
     Route: 065
  7. TIMOLOL MALEATE [Concomitant]
     Indication: EYE DISORDER
     Route: 065
  8. DRUG, UNSPECIFIED [Concomitant]
     Indication: EYE DISORDER
     Route: 065
  9. GENTEL [Concomitant]
     Indication: EYE DISORDER
     Dosage: TEXT:UNSPECIFIED
     Route: 065
  10. SYSTANE [Concomitant]
     Indication: EYE DISORDER
     Dosage: TEXT:UNSPECIFIED
     Route: 065
  11. DRY EYE GEL [Concomitant]
     Indication: EYE DISORDER
     Dosage: TEXT:UNSPECIFIED
     Route: 065
  12. NORVASC [Concomitant]
     Indication: BLOOD DISORDER
     Route: 048
  13. LANOXIN [Concomitant]
     Indication: CARDIAC DISORDER
     Route: 048
  14. HYDROCODONE [Concomitant]
     Indication: PAIN
     Route: 048
  15. NOVOLOG [Concomitant]
     Indication: DIABETES MELLITUS
     Dosage: TEXT:^4 OR 5 SHOTS A DAY^
     Route: 050
  16. FOSAMAX [Concomitant]
     Indication: BONE DENSITY DECREASED
     Route: 048
  17. SECTRAL [Concomitant]
     Indication: CARDIAC DISORDER
     Route: 048
  18. COZAAR [Concomitant]
     Indication: HYPERTENSION
     Dosage: TEXT:UNSPECIFIED
     Route: 065

REACTIONS (5)
  - EATING DISORDER [None]
  - HYPOGLYCAEMIA [None]
  - INSOMNIA [None]
  - MALAISE [None]
  - PAIN [None]
